FAERS Safety Report 15115897 (Version 2)
Quarter: 2018Q3

REPORT INFORMATION
  Report Type: Spontaneous
  Country: IT (occurrence: IT)
  Receive Date: 20180706
  Receipt Date: 20180723
  Transmission Date: 20181010
  Serious: Yes (Other)
  Sender: FDA-Public Use
  Company Number: PHHY2018IT036897

PATIENT
  Age: 37 Year
  Sex: Male

DRUGS (8)
  1. EN [Suspect]
     Active Substance: DELORAZEPAM
     Indication: PRODUCT USED FOR UNKNOWN INDICATION
     Dosage: 20 ML, UNK (TOTAL)
     Route: 048
  2. OLANZAPINE. [Suspect]
     Active Substance: OLANZAPINE
     Dosage: 280 MG, UNK (TOTAL)
     Route: 048
     Dates: start: 20180408
  3. EN [Suspect]
     Active Substance: DELORAZEPAM
     Dosage: 20 ML, UNK (TOTAL)
     Route: 048
     Dates: start: 20180408
  4. HALDOL [Suspect]
     Active Substance: HALOPERIDOL
     Indication: PRODUCT USED FOR UNKNOWN INDICATION
     Dosage: UNK
     Route: 048
  5. HALDOL [Suspect]
     Active Substance: HALOPERIDOL
     Dosage: 30 ML, UNK
     Route: 048
     Dates: start: 20180408
  6. VATRAN [Suspect]
     Active Substance: DIAZEPAM
     Dosage: 60 MG, UNK (TOTAL)
     Route: 048
     Dates: start: 20180408
  7. OLANZAPINE. [Suspect]
     Active Substance: OLANZAPINE
     Indication: PRODUCT USED FOR UNKNOWN INDICATION
     Dosage: UNK
     Route: 048
  8. VATRAN [Suspect]
     Active Substance: DIAZEPAM
     Indication: PRODUCT USED FOR UNKNOWN INDICATION
     Dosage: 60 MG, UNK (TOTAL)
     Route: 048

REACTIONS (3)
  - Intentional self-injury [Unknown]
  - Intentional overdose [Unknown]
  - Sopor [Unknown]

NARRATIVE: CASE EVENT DATE: 20180408
